FAERS Safety Report 26194131 (Version 1)
Quarter: 2025Q4

REPORT INFORMATION
  Report Type: Spontaneous
  Country: JP (occurrence: JP)
  Receive Date: 20251224
  Receipt Date: 20251224
  Transmission Date: 20260117
  Serious: Yes (Other)
  Sender: MYLAN
  Company Number: JP-VIATRISJAPAN-2025M1108979AA

PATIENT
  Age: 9 Decade
  Sex: Female

DRUGS (8)
  1. CELECOXIB [Suspect]
     Active Substance: CELECOXIB
     Indication: Procedural pain
     Dosage: AFTER BREAKFAST AND DINNER
     Route: 061
  2. CELECOXIB [Suspect]
     Active Substance: CELECOXIB
     Dosage: AFTER BREAKFAST AND DINNER
     Route: 061
  3. CELECOXIB [Suspect]
     Active Substance: CELECOXIB
     Dosage: AFTER BREAKFAST AND DINNER
     Route: 048
  4. CELECOXIB [Suspect]
     Active Substance: CELECOXIB
     Dosage: AFTER BREAKFAST AND DINNER
     Route: 048
  5. CELECOXIB [Suspect]
     Active Substance: CELECOXIB
     Dosage: REDUCED ON POSTOPERATIVE DAY 7, AFTER BREAKFAST AND DINNER
     Route: 061
  6. CELECOXIB [Suspect]
     Active Substance: CELECOXIB
     Dosage: REDUCED ON POSTOPERATIVE DAY 7, AFTER BREAKFAST AND DINNER
     Route: 061
  7. CELECOXIB [Suspect]
     Active Substance: CELECOXIB
     Dosage: REDUCED ON POSTOPERATIVE DAY 7, AFTER BREAKFAST AND DINNER
     Route: 048
  8. CELECOXIB [Suspect]
     Active Substance: CELECOXIB
     Dosage: REDUCED ON POSTOPERATIVE DAY 7, AFTER BREAKFAST AND DINNER
     Route: 048

REACTIONS (1)
  - Delirium [Recovered/Resolved]
